FAERS Safety Report 12081074 (Version 4)
Quarter: 2019Q3

REPORT INFORMATION
  Report Type: Spontaneous
  Country: CA (occurrence: CA)
  Receive Date: 20160216
  Receipt Date: 20190918
  Transmission Date: 20191004
  Serious: Yes (Other)
  Sender: FDA-Public Use
  Company Number: CA-TEVA-634645USA

PATIENT
  Age: 70 Year
  Sex: Female

DRUGS (51)
  1. MORPHINE [Suspect]
     Active Substance: MORPHINE
  2. HYDROMORPHONE HYDROCHLORIDE INJECTION USP [Suspect]
     Active Substance: HYDROMORPHONE HYDROCHLORIDE
     Dosage: 48 MILLIGRAM DAILY;
     Route: 030
  3. HYDROMORPHONE [Suspect]
     Active Substance: HYDROMORPHONE
     Dosage: 6 MILLIGRAM DAILY;
     Route: 048
  4. PHENETICILLIN POTASSIUM [Suspect]
     Active Substance: PHENETHICILLIN POTASSIUM
     Indication: PRODUCT USED FOR UNKNOWN INDICATION
     Route: 065
  5. AVELOX [Suspect]
     Active Substance: MOXIFLOXACIN HYDROCHLORIDE
     Route: 065
  6. MOBICOX [Suspect]
     Active Substance: MELOXICAM
     Indication: PRODUCT USED FOR UNKNOWN INDICATION
     Route: 065
  7. HYDROMORPHONE [Concomitant]
     Active Substance: HYDROMORPHONE
     Route: 048
  8. NAPROXEN. [Suspect]
     Active Substance: NAPROXEN
     Route: 065
  9. GABAPENTIN. [Suspect]
     Active Substance: GABAPENTIN
     Route: 065
  10. RANITIDINE. [Suspect]
     Active Substance: RANITIDINE
     Route: 065
  11. HYDROMORPHONE HYDROCHLORIDE INJECTION USP [Suspect]
     Active Substance: HYDROMORPHONE HYDROCHLORIDE
     Indication: PRODUCT USED FOR UNKNOWN INDICATION
     Dosage: 72 MILLIGRAM DAILY;
     Route: 030
  12. CODEINE [Suspect]
     Active Substance: CODEINE
     Route: 065
  13. EZETIMIBE. [Suspect]
     Active Substance: EZETIMIBE
     Route: 065
  14. GATIFLOXACIN. [Suspect]
     Active Substance: GATIFLOXACIN
     Route: 065
  15. BENZYLPENICILLIN [Suspect]
     Active Substance: PENICILLIN G
     Indication: PRODUCT USED FOR UNKNOWN INDICATION
     Route: 065
  16. INSULIN [Concomitant]
     Active Substance: INSULIN NOS
     Route: 048
  17. PANCREALIPASE [Concomitant]
     Active Substance: PANCRELIPASE
     Route: 048
  18. FENOFIBRATE S NOS [Concomitant]
     Route: 048
  19. HYDROMORPHONE HYDROCHLORIDE. [Concomitant]
     Active Substance: HYDROMORPHONE HYDROCHLORIDE
     Dosage: 1 MILLIGRAM DAILY;
  20. TOPIRAMATE. [Suspect]
     Active Substance: TOPIRAMATE
     Route: 065
  21. METFORMIN [Suspect]
     Active Substance: METFORMIN HYDROCHLORIDE
     Route: 065
  22. MORPHINE [Suspect]
     Active Substance: MORPHINE
     Route: 065
  23. AURO-EZETIMIBE [Suspect]
     Active Substance: EZETIMIBE
     Indication: PRODUCT USED FOR UNKNOWN INDICATION
     Route: 065
  24. GEMCITABINE. [Concomitant]
     Active Substance: GEMCITABINE
     Indication: ADENOCARCINOMA PANCREAS
     Dosage: WEEKLY THREE OUT OF FOUR WEEKS FOR EIGHT CYCLES.
  25. RANITIDINE. [Suspect]
     Active Substance: RANITIDINE
     Route: 065
  26. ATORVASTATIN CALCIUM. [Suspect]
     Active Substance: ATORVASTATIN CALCIUM
     Indication: PRODUCT USED FOR UNKNOWN INDICATION
     Route: 065
  27. CELECOXIB. [Suspect]
     Active Substance: CELECOXIB
     Route: 065
  28. MELOXICAM. [Suspect]
     Active Substance: MELOXICAM
     Route: 065
  29. MOXIFLOXACIN. [Suspect]
     Active Substance: MOXIFLOXACIN
     Route: 065
  30. AURO-METFORMIN [Suspect]
     Active Substance: METFORMIN HYDROCHLORIDE
     Indication: PRODUCT USED FOR UNKNOWN INDICATION
     Route: 065
  31. ESOMEPRAZOLE. [Concomitant]
     Active Substance: ESOMEPRAZOLE MAGNESIUM
     Route: 048
  32. HYDROMORPHONE [Concomitant]
     Active Substance: HYDROMORPHONE
     Route: 048
  33. HYDROMORPHONE HYDROCHLORIDE. [Concomitant]
     Active Substance: HYDROMORPHONE HYDROCHLORIDE
     Dosage: 1 MILLIGRAM DAILY;
     Route: 065
  34. LANTUS [Concomitant]
     Active Substance: INSULIN GLARGINE
  35. METFORMIN [Suspect]
     Active Substance: METFORMIN HYDROCHLORIDE
     Indication: TYPE 2 DIABETES MELLITUS
     Route: 065
  36. GLYBURIDE. [Suspect]
     Active Substance: GLYBURIDE
     Route: 065
  37. ZANTAC [Suspect]
     Active Substance: RANITIDINE HYDROCHLORIDE
     Indication: PRODUCT USED FOR UNKNOWN INDICATION
     Route: 065
  38. IRBESARTAN. [Concomitant]
     Active Substance: IRBESARTAN
     Route: 048
  39. MORPHINE [Suspect]
     Active Substance: MORPHINE
     Dosage: AVERAGE MORPHINE EQUIVALENT DAILY DOSE WAS 25 MG
     Route: 065
  40. GLICLAZIDE [Suspect]
     Active Substance: GLICLAZIDE
     Route: 065
  41. VIOXX [Suspect]
     Active Substance: ROFECOXIB
     Indication: PRODUCT USED FOR UNKNOWN INDICATION
     Route: 065
  42. HYDROMORPHONE [Suspect]
     Active Substance: HYDROMORPHONE
     Dosage: 24 MILLIGRAM DAILY;
     Route: 048
  43. ROFECOXIB [Suspect]
     Active Substance: ROFECOXIB
     Route: 065
  44. ALTACE [Suspect]
     Active Substance: RAMIPRIL
     Indication: PRODUCT USED FOR UNKNOWN INDICATION
     Route: 065
  45. INSULIN GLARGINE [Concomitant]
     Active Substance: INSULIN GLARGINE
     Dosage: DAILY AT BED TIME
  46. RAMIPRIL. [Suspect]
     Active Substance: RAMIPRIL
     Route: 065
  47. PRILOCAINE [Suspect]
     Active Substance: PRILOCAINE
     Route: 065
  48. PENICILLIN G [Suspect]
     Active Substance: PENICILLIN G
     Indication: PRODUCT USED FOR UNKNOWN INDICATION
     Route: 065
  49. CODEINE [Suspect]
     Active Substance: CODEINE
     Indication: PRODUCT USED FOR UNKNOWN INDICATION
     Route: 065
  50. HYDROMORPHONE HYDROCHLORIDE. [Concomitant]
     Active Substance: HYDROMORPHONE HYDROCHLORIDE
     Dosage: 6 MILLIGRAM DAILY;
  51. HYDROMORPHONE HYDROCHLORIDE. [Concomitant]
     Active Substance: HYDROMORPHONE HYDROCHLORIDE
     Dosage: 6 MILLIGRAM DAILY;

REACTIONS (2)
  - Anaphylactic reaction [Unknown]
  - Drug intolerance [Unknown]
